FAERS Safety Report 8582520-1 (Version None)
Quarter: 2012Q3

REPORT INFORMATION
  Report Type: 
  Country: None (occurrence: None)
  Receive Date: 20120727
  Receipt Date: 20120707
  Transmission Date: 20120928
  Serious: Yes (Disabling)
  Sender: FDA-Public Use
  Company Number: CF 1913151

PATIENT
  Age: 54 Year
  Sex: Female

DRUGS (9)
  1. ACUVUE OASYS SOFT LENSES [Concomitant]
  2. KOMBIGLYZE XR [Concomitant]
  3. ALCON OPTIFREE REPLENISH [Concomitant]
  4. LOSARTAN POTASSIUM [Concomitant]
  5. AMLODIPINE [Concomitant]
  6. POLYETHYLENE GLYCOL [Suspect]
     Indication: DRY EYE
     Dosage: 1 DROP AS NEEDED TO EYE
     Dates: start: 20090101, end: 20120101
  7. POLYETHYLENE GLYCOL [Suspect]
     Indication: DRY EYE
     Dosage: 1 DROP AS NEEDED TO EYE
     Dates: start: 20090101, end: 20120101
  8. METAPROLOL [Concomitant]
  9. ATORVASTATIN [Concomitant]

REACTIONS (2)
  - KERATITIS FUNGAL [None]
  - TRANSMISSION OF AN INFECTIOUS AGENT VIA A MEDICINAL PRODUCT [None]
